FAERS Safety Report 9600053 (Version 1)
Quarter: 2013Q4

REPORT INFORMATION
  Report Type: Spontaneous
  Country: US (occurrence: US)
  Receive Date: 20131004
  Receipt Date: 20131004
  Transmission Date: 20140711
  Serious: No
  Sender: FDA-Public Use
  Company Number: US-AMGEN-USASP2013032524

PATIENT
  Age: 54 Year
  Sex: Female

DRUGS (8)
  1. ENBREL [Suspect]
     Indication: RHEUMATOID ARTHRITIS
     Dosage: 50 MG, QWK
     Route: 058
     Dates: start: 201304
  2. CYMBALTA [Concomitant]
     Dosage: UNK
  3. CENTRUM SILVER                     /02363801/ [Concomitant]
     Dosage: UNK
  4. COUMADIN                           /00014802/ [Concomitant]
     Dosage: UNK
  5. GABAPENTIN [Concomitant]
     Dosage: UNK
  6. TRIAMTERENE AND HYDROCHLOROTHIAZID [Concomitant]
     Dosage: UNK
  7. CALCITRATE [Concomitant]
     Dosage: UNK
  8. PREVACID [Concomitant]
     Dosage: UNK

REACTIONS (2)
  - Nausea [Unknown]
  - Headache [Unknown]
